FAERS Safety Report 17391349 (Version 2)
Quarter: 2020Q1

REPORT INFORMATION
  Report Type: Report from Study
  Country: MX (occurrence: MX)
  Receive Date: 20200207
  Receipt Date: 20200219
  Transmission Date: 20200409
  Serious: Yes (Other)
  Sender: FDA-Public Use
  Company Number: NVSC2020MX029601

PATIENT
  Sex: Male
  Weight: 90 kg

DRUGS (2)
  1. EXFORGE HCT [Suspect]
     Active Substance: AMLODIPINE BESYLATE\HYDROCHLOROTHIAZIDE\VALSARTAN
     Indication: BLOOD PRESSURE INCREASED
     Dosage: 177.5 (5/160/12.5) MG, QD
     Route: 048
  2. EXFORGE HCT [Suspect]
     Active Substance: AMLODIPINE BESYLATE\HYDROCHLOROTHIAZIDE\VALSARTAN
     Dosage: 177.5 ((5/160/12.5) MG,BID
     Route: 048

REACTIONS (6)
  - Choroidal effusion [Unknown]
  - Ear disorder [Unknown]
  - Product use issue [Unknown]
  - Intraocular pressure increased [Unknown]
  - Visual impairment [Unknown]
  - Product prescribing error [Unknown]
